FAERS Safety Report 26054473 (Version 1)
Quarter: 2025Q4

REPORT INFORMATION
  Report Type: Spontaneous
  Country: JP (occurrence: JP)
  Receive Date: 20251117
  Receipt Date: 20251117
  Transmission Date: 20260118
  Serious: Yes (Other)
  Sender: GUERBET
  Company Number: JP-GUERBETG_JAPAN-JP-20250183

PATIENT
  Age: 44 Year
  Sex: Female

DRUGS (2)
  1. LIPIODOL [Suspect]
     Active Substance: ETHIODIZED OIL
     Indication: Therapeutic embolisation
     Dosage: EMBOLIZATION USING A COMBINATION OF COILS AND A TOTAL 1.8 ML MIXTURE OF NBCA AND LIPIODOL (33%)
     Route: 013
  2. UNSPECIFIED INGREDIENT [Suspect]
     Active Substance: UNSPECIFIED INGREDIENT
     Indication: Therapeutic embolisation
     Dosage: EMBOLIZATION USING A COMBINATION OF COILS AND A TOTAL 1.8 ML MIXTURE OF NBCA AND LIPIODOL (33%)
     Route: 013

REACTIONS (1)
  - Stent-graft endoleak [Unknown]
